FAERS Safety Report 23334960 (Version 1)
Quarter: 2023Q4

REPORT INFORMATION
  Report Type: Spontaneous
  Country: ZA (occurrence: None)
  Receive Date: 20231225
  Receipt Date: 20231225
  Transmission Date: 20240110
  Serious: Yes (Hospitalization)
  Sender: FDA-Public Use
  Company Number: 2023A290353

PATIENT
  Age: 17166 Day
  Sex: Male

DRUGS (3)
  1. DAPAGLIFLOZIN [Suspect]
     Active Substance: DAPAGLIFLOZIN
     Indication: Diabetes mellitus
     Dosage: 100.0IU UNKNOWN
     Route: 048
  2. LIPOGEN [Concomitant]
     Indication: Blood cholesterol
     Dosage: 80.0MG UNKNOWN
     Route: 048
  3. HYDROCHLOROTHIAZIDE\LOSARTAN POTASSIUM [Concomitant]
     Active Substance: HYDROCHLOROTHIAZIDE\LOSARTAN POTASSIUM
     Indication: Hypertension
     Dosage: 12.5MG UNKNOWN
     Route: 048

REACTIONS (1)
  - Peripheral arterial occlusive disease [Unknown]
